FAERS Safety Report 17111281 (Version 2)
Quarter: 2019Q4

REPORT INFORMATION
  Report Type: Report from Study
  Country: BR (occurrence: BR)
  Receive Date: 20191204
  Receipt Date: 20191211
  Transmission Date: 20200122
  Serious: Yes (Other)
  Sender: FDA-Public Use
  Company Number: BR-JNJFOC-20191137789

PATIENT
  Sex: Female

DRUGS (2)
  1. INFLIXIMAB, RECOMBINANT [Suspect]
     Active Substance: INFLIXIMAB
     Route: 042
     Dates: start: 201707, end: 201806
  2. INFLIXIMAB, RECOMBINANT [Suspect]
     Active Substance: INFLIXIMAB
     Indication: CROHN^S DISEASE
     Route: 042
     Dates: start: 20170526

REACTIONS (8)
  - Anaemia [Recovering/Resolving]
  - Haemorrhage [Recovering/Resolving]
  - Gastrointestinal inflammation [Recovering/Resolving]
  - Psoriasis [Unknown]
  - Rash [Recovering/Resolving]
  - Arthralgia [Recovering/Resolving]
  - Systemic lupus erythematosus [Recovered/Resolved]
  - Pain in extremity [Unknown]

NARRATIVE: CASE EVENT DATE: 2018
